FAERS Safety Report 12145501 (Version 1)
Quarter: 2016Q1

REPORT INFORMATION
  Report Type: Spontaneous
  Country: US (occurrence: None)
  Receive Date: 20160303
  Receipt Date: 20160303
  Transmission Date: 20160526
  Serious: Yes (Hospitalization)
  Sender: FDA-Public Use
  Company Number: None

PATIENT
  Age: 63 Year
  Sex: Male
  Weight: 124.7 kg

DRUGS (1)
  1. VELCADE [Suspect]
     Active Substance: BORTEZOMIB
     Dates: end: 20160219

REACTIONS (6)
  - Blood creatinine increased [None]
  - Asthenia [None]
  - Blood potassium increased [None]
  - Fall [None]
  - Blood creatine phosphokinase increased [None]
  - Blood glucose increased [None]

NARRATIVE: CASE EVENT DATE: 20160225
